FAERS Safety Report 6790929-1 (Version None)
Quarter: 2010Q2

REPORT INFORMATION
  Report Type: 
  Country: None (occurrence: None)
  Receive Date: 20100624
  Receipt Date: 20100615
  Transmission Date: 20101027
  Serious: Yes (Other)
  Sender: FDA-Public Use
  Company Number: US-ABBOTT-10P-163-0652499-00

PATIENT
  Sex: Female
  Weight: 50.848 kg

DRUGS (1)
  1. HUMIRA [Suspect]
     Indication: RHEUMATOID ARTHRITIS
     Route: 058
     Dates: start: 20091224, end: 20100301

REACTIONS (3)
  - GALLBLADDER DISORDER [None]
  - MALAISE [None]
  - NAUSEA [None]
